FAERS Safety Report 25330569 (Version 1)
Quarter: 2025Q2

REPORT INFORMATION
  Report Type: Spontaneous
  Country: US (occurrence: None)
  Receive Date: 20250516
  Receipt Date: 20250516
  Transmission Date: 20250717
  Serious: No
  Sender: FDA-CTU
  Company Number: None

PATIENT
  Sex: Female

DRUGS (3)
  1. OJJAARA [Suspect]
     Active Substance: MOMELOTINIB DIHYDROCHLORIDE MONOHYDRATE
     Indication: Marrow hyperplasia
     Dosage: 100 MG DAILY ORAL ?
     Route: 048
  2. OJJAARA [Suspect]
     Active Substance: MOMELOTINIB DIHYDROCHLORIDE MONOHYDRATE
     Indication: Myelofibrosis
  3. JAKAFI [Suspect]
     Active Substance: RUXOLITINIB

REACTIONS (5)
  - Diarrhoea [None]
  - Rash [None]
  - Headache [None]
  - Haemoglobin decreased [None]
  - Hypertension [None]
